FAERS Safety Report 7781539-8 (Version None)
Quarter: 2011Q3

REPORT INFORMATION
  Report Type: 
  Country: None (occurrence: None)
  Receive Date: 20110923
  Receipt Date: 20110908
  Transmission Date: 20111222
  Serious: Yes (Other)
  Sender: FDA-Public Use
  Company Number: 2011AP002100

PATIENT
  Age: 20 Year
  Sex: Male

DRUGS (6)
  1. PREDNISOLONE [Suspect]
     Indication: RENAL TRANSPLANT
     Dosage: 10 MG;
  2. TACROLIMUS [Suspect]
     Indication: RENAL TRANSPLANT
  3. CORTICOSTERIODS [Concomitant]
  4. PREDNISOLONE [Concomitant]
  5. MYCOPHENOLATE MOFETIL [Suspect]
     Dosage: 300 MGM**2; PO; BID
     Route: 048
  6. AZATHIOPRINE [Concomitant]

REACTIONS (5)
  - DISEASE RECURRENCE [None]
  - TUBULOINTERSTITIAL NEPHRITIS AND UVEITIS SYNDROME [None]
  - SKIN PAPILLOMA [None]
  - CUSHINGOID [None]
  - DRUG INEFFECTIVE [None]
